FAERS Safety Report 11062635 (Version 1)
Quarter: 2015Q2

REPORT INFORMATION
  Report Type: Spontaneous
  Country: US (occurrence: US)
  Receive Date: 20150424
  Receipt Date: 20150424
  Transmission Date: 20150821
  Serious: No
  Sender: FDA-Public Use
  Company Number: US-ALKERMES INC.-ALK-2014-002908

PATIENT

DRUGS (2)
  1. VIVITROL [Suspect]
     Active Substance: NALTREXONE
     Indication: DRUG DEPENDENCE
     Dosage: 380 MG, UNK
     Route: 030
     Dates: start: 201402
  2. OXYCODONE [Concomitant]
     Active Substance: OXYCODONE
     Indication: WITHDRAWAL SYNDROME
     Dosage: UNK
     Dates: start: 201402

REACTIONS (8)
  - Drug withdrawal syndrome [Unknown]
  - Decreased appetite [Unknown]
  - Drug dependence [Unknown]
  - Loss of consciousness [Unknown]
  - Drug abuse [Unknown]
  - Aggression [Unknown]
  - Malaise [Unknown]
  - Drug administration error [Unknown]

NARRATIVE: CASE EVENT DATE: 201402
